FAERS Safety Report 6388141-3 (Version None)
Quarter: 2009Q4

REPORT INFORMATION
  Report Type: 
  Country: None (occurrence: None)
  Receive Date: 20091005
  Receipt Date: 20090928
  Transmission Date: 20100525
  Serious: Yes (Hospitalization)
  Sender: FDA-Public Use
  Company Number: US-AVENTIS-200918680US

PATIENT
  Sex: Male

DRUGS (2)
  1. AMARYL [Suspect]
     Route: 048
     Dates: end: 20090911
  2. ACTOS [Suspect]
     Dosage: DOSE: UNK

REACTIONS (5)
  - ANGIOPLASTY [None]
  - BLISTER [None]
  - FLUID RETENTION [None]
  - PAIN IN EXTREMITY [None]
  - WEIGHT INCREASED [None]
